FAERS Safety Report 17659718 (Version 1)
Quarter: 2020Q2

REPORT INFORMATION
  Report Type: Report from Study
  Country: US (occurrence: US)
  Receive Date: 20200413
  Receipt Date: 20200413
  Transmission Date: 20200713
  Serious: Yes (Hospitalization, Other)
  Sender: FDA-Public Use
  Company Number: US-ROCHE-2577950

PATIENT
  Sex: Male
  Weight: 108.96 kg

DRUGS (5)
  1. 5-HTP [OXITRIPTAN] [Concomitant]
     Route: 048
  2. NALTREXONE [Concomitant]
     Active Substance: NALTREXONE
     Indication: NEURALGIA
     Dosage: LDN - LOW DOSE NALTREXONE ;ONGOING: YES
     Route: 048
  3. ALPHA LIPOIC ACID [Concomitant]
     Active Substance: .ALPHA.-LIPOIC ACID
     Indication: MULTIPLE SCLEROSIS
     Route: 048
  4. FLOMAX [Concomitant]
     Active Substance: TAMSULOSIN HYDROCHLORIDE
     Route: 048
  5. OCREVUS [Suspect]
     Active Substance: OCRELIZUMAB
     Indication: SECONDARY PROGRESSIVE MULTIPLE SCLEROSIS
     Dosage: YES
     Route: 042
     Dates: start: 2017

REACTIONS (8)
  - Sepsis [Unknown]
  - Multiple sclerosis [Not Recovered/Not Resolved]
  - Mental impairment [Not Recovered/Not Resolved]
  - Anxiety [Not Recovered/Not Resolved]
  - Depression [Not Recovered/Not Resolved]
  - Nasopharyngitis [Recovered/Resolved]
  - Mood swings [Not Recovered/Not Resolved]
  - Acne [Recovered/Resolved]

NARRATIVE: CASE EVENT DATE: 2017
